FAERS Safety Report 7328309-2 (Version None)
Quarter: 2011Q1

REPORT INFORMATION
  Report Type: 
  Country: None (occurrence: None)
  Receive Date: 20110222
  Receipt Date: 20110214
  Transmission Date: 20110831
  Serious: Yes (Death, Hospitalization)
  Sender: FDA-Public Use
  Company Number: 2010AC000252

PATIENT
  Age: 80 Year
  Sex: Male

DRUGS (23)
  1. DIGOXIN [Suspect]
     Dosage: 0.25 MG; QOD; PO
     Route: 048
     Dates: start: 20080206, end: 20080401
  2. LEVAQUIN [Concomitant]
  3. MYLANTA [Concomitant]
  4. METOCLOPRAMIDE HCL [Concomitant]
  5. ZOFRAN [Concomitant]
  6. DIGOXIN [Suspect]
     Dosage: PO
     Route: 048
     Dates: start: 20070301, end: 20070401
  7. CORDARONE [Concomitant]
  8. METHIMAZOLE [Concomitant]
  9. DIGOXIN [Suspect]
     Dosage: 0.125 MG; QOD; PO
     Route: 048
     Dates: start: 20080206, end: 20080401
  10. METOPROLOL [Concomitant]
  11. PREVACID [Concomitant]
  12. RANITIDINE [Concomitant]
  13. ENOXAPARIN [Concomitant]
  14. LYRICA [Concomitant]
  15. FUROSEMIDE [Concomitant]
  16. ADVAIR DISKUS 100/50 [Concomitant]
  17. ALPRAZOLAM [Concomitant]
  18. ATORVASTATIN [Concomitant]
  19. FLAGYL [Concomitant]
  20. WARFARIN [Concomitant]
  21. LORAZEPAM [Concomitant]
  22. PLAVIX [Concomitant]
  23. PANTOPRAZOLE [Concomitant]

REACTIONS (32)
  - DYSPNOEA [None]
  - CARDIOACTIVE DRUG LEVEL BELOW THERAPEUTIC [None]
  - CARDIAC MURMUR [None]
  - DIVERTICULITIS [None]
  - GAIT DISTURBANCE [None]
  - SCAR [None]
  - PALPITATIONS [None]
  - TOXICITY TO VARIOUS AGENTS [None]
  - ARTERIOSCLEROSIS CORONARY ARTERY [None]
  - DIASTOLIC DYSFUNCTION [None]
  - FALL [None]
  - LACERATION [None]
  - ACCIDENTAL DEATH [None]
  - ATELECTASIS [None]
  - DIARRHOEA [None]
  - CARDIOACTIVE DRUG LEVEL ABOVE THERAPEUTIC [None]
  - VOMITING [None]
  - ASTHENIA [None]
  - SUBDURAL HAEMATOMA [None]
  - AORTIC ANEURYSM [None]
  - RESTRICTIVE PULMONARY DISEASE [None]
  - HEAD INJURY [None]
  - CARDIO-RESPIRATORY ARREST [None]
  - LUNG DISORDER [None]
  - MULTIPLE INJURIES [None]
  - DYSURIA [None]
  - ANXIETY [None]
  - ATRIAL FIBRILLATION [None]
  - GASTROOESOPHAGEAL REFLUX DISEASE [None]
  - OEDEMA PERIPHERAL [None]
  - FATIGUE [None]
  - FAILURE TO THRIVE [None]
